FAERS Safety Report 21032662 (Version 4)
Quarter: 2022Q3

REPORT INFORMATION
  Report Type: Spontaneous
  Country: IE (occurrence: IE)
  Receive Date: 20220701
  Receipt Date: 20220912
  Transmission Date: 20221027
  Serious: Yes (Life-Threatening, Hospitalization, Other)
  Sender: FDA-Public Use
  Company Number: IE-MYLANLABS-2022M1049172

PATIENT
  Sex: Female

DRUGS (1)
  1. CLOZARIL [Suspect]
     Active Substance: CLOZAPINE
     Indication: Schizophrenia
     Dosage: UNK
     Route: 048
     Dates: start: 20090612

REACTIONS (5)
  - Terminal state [Unknown]
  - Breast cancer [Not Recovered/Not Resolved]
  - Recurrent cancer [Unknown]
  - Metastasis [Unknown]
  - Drug ineffective [Unknown]
